FAERS Safety Report 10752025 (Version 1)
Quarter: 2015Q1

REPORT INFORMATION
  Report Type: Spontaneous
  Country: BR (occurrence: BR)
  Receive Date: 20150130
  Receipt Date: 20150130
  Transmission Date: 20150721
  Serious: Yes (Hospitalization)
  Sender: FDA-Public Use
  Company Number: BR-PFIZER INC-2015036214

PATIENT
  Age: 76 Year
  Sex: Female
  Weight: 65 kg

DRUGS (9)
  1. ATENOLOL. [Concomitant]
     Active Substance: ATENOLOL
     Indication: CARDIAC DISORDER
     Dosage: 1 UNSPECIFIED FORMULATION, AT MORNING AND AT NIGHT
     Dates: start: 2012
  2. XALATAN [Suspect]
     Active Substance: LATANOPROST
     Indication: GLAUCOMA
  3. MOTILIUM [Concomitant]
     Active Substance: DOMPERIDONE
     Indication: GASTRIC DISORDER
     Dosage: 1 UNSPECIFIED POSOLOGY, AT MORNING AND AT NIGHT
     Dates: start: 2012
  4. PANTOPRAZOLE [Concomitant]
     Active Substance: PANTOPRAZOLE SODIUM
     Indication: GASTRITIS
     Dosage: 1 OR 2 TABLETS, DAILY
     Dates: start: 2012
  5. VITALUX [Concomitant]
     Active Substance: MINERALS\VITAMINS
     Indication: VITAMIN SUPPLEMENTATION
     Dosage: 1 TABLET, 1X/DAY
     Dates: start: 2013
  6. ALDAZIDA [Concomitant]
     Active Substance: HYDROCHLOROTHIAZIDE\SPIRONOLACTONE
     Indication: DIURETIC THERAPY
     Dosage: 0.5 TABLET, DAILY
     Dates: start: 2013
  7. EUTHYROX [Concomitant]
     Active Substance: LEVOTHYROXINE SODIUM
     Indication: THYROID DISORDER
     Dosage: 1 TABLET, DAILY
     Dates: start: 2010
  8. XALATAN [Suspect]
     Active Substance: LATANOPROST
     Indication: INTRAOCULAR PRESSURE INCREASED
     Dosage: 1 DROP IN EACH EYE (3 UG), 1X/DAY
     Route: 047
     Dates: start: 2005
  9. SUSTRATE [Concomitant]
     Active Substance: PROPATYL NITRATE
     Indication: ISCHAEMIA
     Dosage: 3 TABLETS, DAILY
     Dates: start: 2013

REACTIONS (1)
  - Cardiac disorder [Unknown]
